FAERS Safety Report 10289524 (Version 7)
Quarter: 2016Q2

REPORT INFORMATION
  Report Type: Report from Study
  Country: CA (occurrence: CA)
  Receive Date: 20140710
  Receipt Date: 20160428
  Transmission Date: 20160815
  Serious: Yes (Other)
  Sender: FDA-Public Use
  Company Number: PHHY2014CA083688

PATIENT
  Age: 38 Year
  Sex: Male

DRUGS (7)
  1. SYNTHROID [Concomitant]
     Active Substance: LEVOTHYROXINE SODIUM
     Dosage: 200 OT, UNK
     Route: 065
  2. TASIGNA [Suspect]
     Active Substance: NILOTINIB
     Indication: CHRONIC MYELOID LEUKAEMIA
     Dosage: UNK, BID
     Route: 048
     Dates: start: 2012, end: 201404
  3. TASIGNA [Suspect]
     Active Substance: NILOTINIB
     Dosage: 300 MG, BID
     Route: 048
     Dates: start: 201405
  4. LYRICA [Suspect]
     Active Substance: PREGABALIN
     Indication: PAIN
     Route: 065
  5. LORAZEPAM. [Suspect]
     Active Substance: LORAZEPAM
     Indication: POOR QUALITY SLEEP
     Route: 065
  6. GABAPENTIN. [Suspect]
     Active Substance: GABAPENTIN
     Indication: PAIN
     Dosage: UNK UNK, TID
     Route: 065
  7. SYNTHROID [Concomitant]
     Active Substance: LEVOTHYROXINE SODIUM
     Indication: HYPOTHYROIDISM
     Dosage: 175 OT, UNK
     Route: 065

REACTIONS (40)
  - Memory impairment [Unknown]
  - Tremor [Recovered/Resolved]
  - Influenza [Unknown]
  - Arthralgia [Not Recovered/Not Resolved]
  - Nausea [Unknown]
  - Abdominal pain upper [Unknown]
  - Incorrect dose administered [Unknown]
  - Blood pressure increased [Unknown]
  - Vertigo [Unknown]
  - Lower respiratory tract infection [Unknown]
  - Fatigue [Unknown]
  - Nasopharyngitis [Unknown]
  - Bladder pain [Unknown]
  - Feeling abnormal [Unknown]
  - Clumsiness [Unknown]
  - Coordination abnormal [Unknown]
  - Haemoptysis [Unknown]
  - Sinus congestion [Unknown]
  - Pain [Recovering/Resolving]
  - Bone pain [Not Recovered/Not Resolved]
  - Thyroid function test abnormal [Unknown]
  - Dizziness [Unknown]
  - Headache [Unknown]
  - Chest discomfort [Unknown]
  - Chills [Unknown]
  - Diverticulitis [Unknown]
  - Rash pruritic [Recovered/Resolved]
  - Malaise [Unknown]
  - Weight decreased [Unknown]
  - Muscular weakness [Unknown]
  - Pollakiuria [Unknown]
  - Somnolence [Unknown]
  - Poor quality sleep [Recovering/Resolving]
  - Dry throat [Unknown]
  - Back pain [Not Recovered/Not Resolved]
  - Pyrexia [Recovered/Resolved]
  - Platelet count decreased [Unknown]
  - Feeling cold [Unknown]
  - Dyspepsia [Unknown]
  - Photosensitivity reaction [Unknown]

NARRATIVE: CASE EVENT DATE: 201604
